FAERS Safety Report 21387205 (Version 2)
Quarter: 2022Q4

REPORT INFORMATION
  Report Type: Spontaneous
  Country: US (occurrence: US)
  Receive Date: 20220928
  Receipt Date: 20221021
  Transmission Date: 20230112
  Serious: No
  Sender: FDA-Public Use
  Company Number: US-BIOGEN-2022BI01150365

PATIENT
  Age: 38 Year
  Sex: Female

DRUGS (15)
  1. TECFIDERA [Suspect]
     Active Substance: DIMETHYL FUMARATE
     Indication: Multiple sclerosis
     Route: 050
     Dates: start: 202207, end: 202207
  2. TECFIDERA [Suspect]
     Active Substance: DIMETHYL FUMARATE
     Route: 050
  3. TECFIDERA [Suspect]
     Active Substance: DIMETHYL FUMARATE
     Route: 050
  4. TECFIDERA [Suspect]
     Active Substance: DIMETHYL FUMARATE
     Dosage: STARTER DOSE
     Route: 050
  5. ATORVASTATIN CALCIUM [Concomitant]
     Active Substance: ATORVASTATIN CALCIUM
     Route: 050
  6. METFORMIN HYDROCHLORIDE [Concomitant]
     Active Substance: METFORMIN HYDROCHLORIDE
     Route: 050
  7. PROMETHAZINE HYDROCHLORIDE [Concomitant]
     Active Substance: PROMETHAZINE HYDROCHLORIDE
     Route: 050
  8. HUMALOG [Concomitant]
     Active Substance: INSULIN LISPRO
     Route: 050
  9. LANTUS [Concomitant]
     Active Substance: INSULIN GLARGINE
     Route: 050
  10. VICTOZA [Concomitant]
     Active Substance: LIRAGLUTIDE
     Route: 050
  11. GABAPENTIN [Concomitant]
     Active Substance: GABAPENTIN
     Route: 050
  12. ACETAZOLAMIDE [Concomitant]
     Active Substance: ACETAZOLAMIDE
     Route: 050
  13. LISINOPRIL AND HYDROCHLOROTHIAZIDE [Concomitant]
     Active Substance: HYDROCHLOROTHIAZIDE\LISINOPRIL
     Route: 050
  14. AMLODIPINE BESYLATE [Concomitant]
     Active Substance: AMLODIPINE BESYLATE
     Route: 050
  15. ZOFRAN [Concomitant]
     Active Substance: ONDANSETRON HYDROCHLORIDE
     Route: 050

REACTIONS (7)
  - Papilloedema [Not Recovered/Not Resolved]
  - Multiple sclerosis relapse [Unknown]
  - Illness [Unknown]
  - Food aversion [Unknown]
  - Vomiting [Recovered/Resolved]
  - Nausea [Recovered/Resolved]
  - Diarrhoea [Unknown]

NARRATIVE: CASE EVENT DATE: 20220701
